FAERS Safety Report 22748902 (Version 6)
Quarter: 2024Q4

REPORT INFORMATION
  Report Type: Spontaneous
  Country: US (occurrence: US)
  Receive Date: 20230725
  Receipt Date: 20241210
  Transmission Date: 20250115
  Serious: Yes (Other)
  Sender: PFIZER
  Company Number: US-PFIZER INC-202300254626

PATIENT
  Age: 76 Year
  Sex: Female

DRUGS (1)
  1. XELJANZ XR [Suspect]
     Active Substance: TOFACITINIB CITRATE
     Indication: Sjogren^s syndrome
     Dosage: 11 MG, 1X/DAY
     Route: 048

REACTIONS (6)
  - Dyspnoea [Unknown]
  - Off label use [Unknown]
  - Weight increased [Unknown]
  - Hyperphagia [Unknown]
  - Blood cholesterol increased [Not Recovered/Not Resolved]
  - Ulcer [Unknown]
